FAERS Safety Report 10484541 (Version 2)
Quarter: 2017Q3

REPORT INFORMATION
  Report Type: Spontaneous
  Country: JP (occurrence: JP)
  Receive Date: 20140930
  Receipt Date: 20170906
  Transmission Date: 20171127
  Serious: Yes (Other)
  Sender: FDA-Public Use
  Company Number: JP-PFIZER INC-2014267053

PATIENT
  Age: 33 Year
  Sex: Male
  Weight: 71.5 kg

DRUGS (1)
  1. HALCION [Suspect]
     Active Substance: TRIAZOLAM
     Dosage: 2.5 MG, SINGLE
     Route: 048

REACTIONS (3)
  - Amnesia [Unknown]
  - Road traffic accident [Unknown]
  - Overdose [Unknown]
